FAERS Safety Report 6463664-7 (Version None)
Quarter: 2009Q4

REPORT INFORMATION
  Report Type: 
  Country: None (occurrence: None)
  Receive Date: 20091201
  Receipt Date: 20091119
  Transmission Date: 20100525
  Serious: Yes (Other)
  Sender: FDA-Public Use
  Company Number: PHEH2009US16662

PATIENT
  Sex: Male

DRUGS (1)
  1. EXJADE [Suspect]
     Indication: TRANSFUSION REACTION
     Dosage: 1625 MG, UNK
     Route: 048
     Dates: start: 20090522, end: 20090910

REACTIONS (1)
  - LEUKAEMIA [None]
